FAERS Safety Report 8477091-4 (Version None)
Quarter: 2012Q2

REPORT INFORMATION
  Report Type: 
  Country: None (occurrence: None)
  Receive Date: 20120629
  Receipt Date: 20120626
  Transmission Date: 20120825
  Serious: No
  Sender: FDA-Public Use
  Company Number: US-PFIZER INC-2012154219

PATIENT
  Sex: Female
  Weight: 108.84 kg

DRUGS (13)
  1. CHANTIX [Suspect]
     Dosage: 0.5 MG (BY BREAKING 1MG INTO HALF), UNK
     Route: 048
     Dates: end: 20120601
  2. ASPIRIN [Concomitant]
     Indication: PROPHYLAXIS
     Dosage: 81 MG, DAILY
  3. CHANTIX [Suspect]
     Dosage: 1 MG, 2X/DAY
     Route: 048
  4. BENAZEPRIL [Concomitant]
     Indication: HYPERTENSION
     Dosage: 20/25 MG DAILY
  5. ZETIA [Concomitant]
     Indication: BLOOD CHOLESTEROL
     Dosage: 10 MG, DAILY
  6. CHANTIX [Suspect]
     Indication: SMOKING CESSATION THERAPY
     Dosage: 0.5 MG, 1X/DAY
     Route: 048
  7. EFFEXOR [Concomitant]
     Indication: DEPRESSION
     Dosage: 75 MG, DAILY
  8. LORAZEPAM [Suspect]
     Indication: NERVOUS SYSTEM DISORDER
     Dosage: ONE AND A HALF TABLET OF 0.5 MG DAILY
     Route: 048
  9. ALLEGRA [Concomitant]
     Indication: HYPERSENSITIVITY
     Dosage: AS NEEDED
  10. NABUMETONE [Concomitant]
     Indication: ARTHRITIS
     Dosage: 500 MG, 2X/DAY
  11. OXYBUTYNIN [Concomitant]
     Indication: BLADDER DISORDER
     Dosage: 5 MG, 2X/DAY
  12. FLEXERIL [Concomitant]
     Indication: MUSCLE RELAXANT THERAPY
     Dosage: 10 MG, DAILY
  13. CHANTIX [Suspect]
     Dosage: 1 MG, 1X/DAY
     Route: 048

REACTIONS (1)
  - ABNORMAL DREAMS [None]
